FAERS Safety Report 17622470 (Version 2)
Quarter: 2020Q2

REPORT INFORMATION
  Report Type: Report from Study
  Country: US (occurrence: US)
  Receive Date: 20200403
  Receipt Date: 20200512
  Transmission Date: 20200713
  Serious: No
  Sender: FDA-Public Use
  Company Number: US-SA-2020SA082455

PATIENT
  Age: 74 Year
  Sex: Female
  Weight: 81.64 kg

DRUGS (3)
  1. DUPILUMAB [Suspect]
     Active Substance: DUPILUMAB
     Dosage: 300 MG, QOW
     Route: 058
     Dates: start: 202003
  2. ATORVASTATIN [Concomitant]
     Active Substance: ATORVASTATIN
  3. DUPILUMAB [Suspect]
     Active Substance: DUPILUMAB
     Indication: DERMATITIS ATOPIC
     Dosage: 600 MG, 1X
     Route: 058
     Dates: start: 20200303, end: 20200303

REACTIONS (3)
  - Weight decreased [Unknown]
  - Pruritus [Recovering/Resolving]
  - Anxiety [Unknown]
